FAERS Safety Report 6783384-9 (Version None)
Quarter: 2010Q2

REPORT INFORMATION
  Report Type: 
  Country: None (occurrence: None)
  Receive Date: 20100622
  Receipt Date: 20100609
  Transmission Date: 20101027
  Serious: Yes (Death)
  Sender: FDA-Public Use
  Company Number: PHHY2010DE28005

PATIENT
  Sex: Female
  Weight: 82 kg

DRUGS (5)
  1. ALISKIREN ALI+ [Suspect]
     Indication: HYPERTENSION
     Dosage: 150 MG PER DAY
     Route: 048
     Dates: start: 20090319
  2. BETA BLOCKING AGENTS [Concomitant]
  3. DIURETICS [Concomitant]
  4. ANTIDEPRESSANTS [Concomitant]
  5. FUROSEMIDE [Concomitant]
     Dosage: 40 MG, QD
     Route: 048
     Dates: start: 20090403, end: 20090630

REACTIONS (1)
  - PNEUMONIA [None]
